FAERS Safety Report 6669535-5 (Version None)
Quarter: 2010Q2

REPORT INFORMATION
  Report Type: 
  Country: None (occurrence: None)
  Receive Date: 20100406
  Receipt Date: 20100326
  Transmission Date: 20101027
  Serious: Yes (Other)
  Sender: FDA-Public Use
  Company Number: US-WYE-H14335010

PATIENT
  Sex: Female
  Weight: 47.67 kg

DRUGS (6)
  1. PRISTIQ [Suspect]
     Indication: DEPRESSION
     Route: 048
     Dates: start: 20090901, end: 20100325
  2. PRISTIQ [Suspect]
     Indication: AGITATION
  3. PRISTIQ [Suspect]
     Indication: ANGER
  4. PRISTIQ [Suspect]
     Indication: IRRITABILITY
  5. CYMBALTA [Suspect]
     Dosage: UNKNOWN
  6. REMERON [Concomitant]
     Indication: INSOMNIA
     Dosage: UNKNOWN

REACTIONS (6)
  - AGITATION [None]
  - ANGER [None]
  - CONDITION AGGRAVATED [None]
  - HAND FRACTURE [None]
  - IRRITABILITY [None]
  - SUICIDAL BEHAVIOUR [None]
